FAERS Safety Report 18587314 (Version 3)
Quarter: 2021Q1

REPORT INFORMATION
  Report Type: Spontaneous
  Country: AU (occurrence: AU)
  Receive Date: 20201207
  Receipt Date: 20210121
  Transmission Date: 20210419
  Serious: Yes (Other)
  Sender: FDA-Public Use
  Company Number: AU-009507513-2011AUS016949

PATIENT
  Age: 40 Year
  Sex: Female
  Weight: 75 kg

DRUGS (3)
  1. IMPLANON NXT [Suspect]
     Active Substance: ETONOGESTREL
     Dosage: 1 IMPLANT
     Dates: start: 2017, end: 20201118
  2. IMPLANON NXT [Suspect]
     Active Substance: ETONOGESTREL
     Dosage: 3RD IMPLANT
     Route: 059
     Dates: start: 20201118, end: 20201127
  3. IMPLANON NXT [Suspect]
     Active Substance: ETONOGESTREL
     Dosage: 1 IMPLANT
     Dates: start: 2014, end: 2017

REACTIONS (21)
  - Anxiety [Recovered/Resolved]
  - Paraesthesia [Recovered/Resolved]
  - Crying [Recovered/Resolved]
  - Device issue [Recovered/Resolved]
  - Device deployment issue [Recovered/Resolved]
  - Complication of device insertion [Recovered/Resolved]
  - Myalgia [Recovered/Resolved]
  - Implant site bruising [Recovered/Resolved]
  - Implant site pain [Recovered/Resolved]
  - Throat tightness [Recovered/Resolved]
  - Device issue [Recovered/Resolved]
  - Device placement issue [Recovered/Resolved]
  - Complication of device removal [Recovered/Resolved]
  - Device deployment issue [Recovered/Resolved]
  - Medical device site discomfort [Recovered/Resolved]
  - Burning sensation [Unknown]
  - Implant site swelling [Recovered/Resolved]
  - Chest discomfort [Recovered/Resolved]
  - Mood swings [Recovered/Resolved]
  - Implant site scar [Unknown]
  - Hypoaesthesia [Recovered/Resolved]

NARRATIVE: CASE EVENT DATE: 2014
